FAERS Safety Report 18706457 (Version 1)
Quarter: 2021Q1

REPORT INFORMATION
  Report Type: Spontaneous
  Country: DE (occurrence: DE)
  Receive Date: 20210106
  Receipt Date: 20210106
  Transmission Date: 20210419
  Serious: Yes (Hospitalization)
  Sender: FDA-Public Use
  Company Number: DE-LUPIN PHARMACEUTICALS INC.-2020-06718

PATIENT
  Age: 69 Year
  Sex: Female

DRUGS (7)
  1. GADOVIST [Concomitant]
     Active Substance: GADOBUTROL
     Indication: SCAN WITH CONTRAST
     Dosage: 2 MILLILITER
     Route: 037
  2. PREDNISOLONE. [Suspect]
     Active Substance: PREDNISOLONE
     Indication: ANTIALLERGIC THERAPY
     Dosage: 100 MILLIGRAM
     Route: 065
  3. DIMENHYDRINATE. [Suspect]
     Active Substance: DIMENHYDRINATE
     Indication: ENCEPHALOPATHY
     Dosage: 62 MILLIGRAM
     Route: 042
  4. LORAZEPAM. [Suspect]
     Active Substance: LORAZEPAM
     Indication: ENCEPHALOPATHY
     Dosage: 1 MILLIGRAM
     Route: 065
  5. NACL [Concomitant]
     Active Substance: SODIUM CHLORIDE
     Indication: PRODUCT USED FOR UNKNOWN INDICATION
     Dosage: 20 MILLILITER
     Route: 037
  6. RANITIDINE. [Suspect]
     Active Substance: RANITIDINE
     Indication: ANTIALLERGIC THERAPY
     Dosage: 50 MILLIGRAM
     Route: 065
  7. DIMETINDENE [Suspect]
     Active Substance: DIMETHINDENE
     Indication: ANTIALLERGIC THERAPY
     Dosage: 4 MILLIGRAM
     Route: 065

REACTIONS (1)
  - Drug ineffective [Unknown]
